FAERS Safety Report 5463870-4 (Version None)
Quarter: 2007Q3

REPORT INFORMATION
  Report Type: 
  Country: None (occurrence: None)
  Receive Date: 20070712
  Receipt Date: 20070227
  Transmission Date: 20080115
  Serious: Yes (Life-Threatening, Hospitalization)
  Sender: FDA-Public Use
  Company Number: 200711576

PATIENT
  Age: 69 Year
  Sex: Male
  Weight: 88 kg

DRUGS (3)
  1. CARIMUNE (CSL BEHRING) [Suspect]
     Indication: COMBINED IMMUNODEFICIENCY
     Dosage: 30 G DAILY IV; 36 G QD IV;
     Route: 042
     Dates: start: 20070212, end: 20070212
  2. CARIMUNE (CSL BEHRING) [Suspect]
     Indication: COMBINED IMMUNODEFICIENCY
     Dosage: 30 G DAILY IV; 36 G QD IV;
     Route: 042
     Dates: start: 20070213, end: 20070216
  3. CARIMUNE NF (CSL BEHRING) [Suspect]

REACTIONS (7)
  - ANURIA [None]
  - ASTHENIA [None]
  - BLOOD POTASSIUM INCREASED [None]
  - CHEST PAIN [None]
  - DYSPNOEA [None]
  - OLIGURIA [None]
  - RENAL FAILURE [None]
